FAERS Safety Report 10035781 (Version 1)
Quarter: 2014Q1

REPORT INFORMATION
  Report Type: Report from Study
  Country: BR (occurrence: BR)
  Receive Date: 20140325
  Receipt Date: 20140325
  Transmission Date: 20141002
  Serious: Yes (Death)
  Sender: FDA-Public Use
  Company Number: BR-PFIZER INC-2014082160

PATIENT
  Age: 79 Year
  Sex: Male

DRUGS (5)
  1. SPIRONOLACTONE [Suspect]
     Dosage: UNK
  2. SIMVASTATIN [Suspect]
  3. ISOSORBIDE [Suspect]
     Dosage: UNK
  4. CAPTOPRIL [Suspect]
     Dosage: UNK
  5. FUROSEMIDE [Suspect]
     Dosage: UNK

REACTIONS (2)
  - Hypotension [Fatal]
  - Renal failure [Fatal]
